FAERS Safety Report 24318214 (Version 2)
Quarter: 2024Q4

REPORT INFORMATION
  Report Type: Spontaneous
  Country: AT (occurrence: AT)
  Receive Date: 20240913
  Receipt Date: 20241007
  Transmission Date: 20250114
  Serious: Yes (Other)
  Sender: AKEBIA THERAPEUTICS
  Company Number: AT-Medice Arzneimittel-VafseoSPO-31011

PATIENT
  Age: 50 Year
  Sex: Male
  Weight: 64 kg

DRUGS (4)
  1. VADADUSTAT [Suspect]
     Active Substance: VADADUSTAT
     Indication: Nephrogenic anaemia
     Dosage: 300 MG ONCE A DAY
     Route: 048
     Dates: start: 20240703, end: 20240709
  2. BECLOMETHASONE DIPROPIONATE\FORMOTEROL FUMARATE\GLYCOPYRROLATE [Concomitant]
     Active Substance: BECLOMETHASONE DIPROPIONATE\FORMOTEROL FUMARATE\GLYCOPYRROLATE
     Indication: Chronic obstructive pulmonary disease
     Dosage: 2-0-2
     Route: 055
     Dates: start: 20240620
  3. MEROPENEM [Concomitant]
     Active Substance: MEROPENEM
     Indication: Infection
     Dosage: 1-0-0
     Route: 042
     Dates: start: 20240703, end: 20240706
  4. ILARIS [Concomitant]
     Active Substance: CANAKINUMAB
     Indication: Brucellosis
     Dosage: 1X/MONTH
     Route: 058
     Dates: start: 20240620

REACTIONS (2)
  - Haemoglobin decreased [Recovering/Resolving]
  - Condition aggravated [Recovering/Resolving]

NARRATIVE: CASE EVENT DATE: 20240709
